FAERS Safety Report 11165912 (Version 4)
Quarter: 2015Q3

REPORT INFORMATION
  Report Type: Report from Study
  Country: BR (occurrence: BR)
  Receive Date: 20150604
  Receipt Date: 20150710
  Transmission Date: 20151125
  Serious: Yes (Hospitalization, Other)
  Sender: FDA-Public Use
  Company Number: PHHY2015BR065935

PATIENT
  Age: 53 Year
  Sex: Male
  Weight: 115 kg

DRUGS (12)
  1. DIOVAN [Suspect]
     Active Substance: VALSARTAN
     Indication: HYPERTENSION
     Dosage: UNK UNK, QD (IN THE MORNING)
     Route: 065
  2. INSULIN [Suspect]
     Active Substance: INSULIN NOS
     Indication: PRODUCT USED FOR UNKNOWN INDICATION
     Route: 065
  3. AMLODIPINE [Suspect]
     Active Substance: AMLODIPINE BESYLATE
     Indication: CARDIAC DISORDER
     Dosage: UNK UNK, QHS
     Route: 065
  4. HYDROCHLOROTHIAZIDE. [Suspect]
     Active Substance: HYDROCHLOROTHIAZIDE
     Indication: HYPERTENSION
     Route: 065
  5. SOMALGIN [Suspect]
     Active Substance: ASPIRIN\DIHYDROXYALUMINUM AMINOACETATE ANHYDROUS\MAGNESIUM CARBONATE
     Indication: BLOOD DISORDER
     Dosage: UNK
     Route: 065
  6. SINVASTATINA [Suspect]
     Active Substance: SIMVASTATIN
     Indication: HEART RATE IRREGULAR
  7. SINVASTATINA [Suspect]
     Active Substance: SIMVASTATIN
     Indication: CARDIAC DISORDER
  8. SEROQUEL [Suspect]
     Active Substance: QUETIAPINE FUMARATE
     Indication: INSOMNIA
     Route: 065
  9. CONCOR [Suspect]
     Active Substance: BISOPROLOL FUMARATE
     Indication: CARDIOMEGALY
     Dosage: UNK UNK, QD (IN THE MORNING)
     Route: 065
  10. SANDOSTATIN LAR DEPOT [Suspect]
     Active Substance: OCTREOTIDE ACETATE
     Indication: MALIGNANT PITUITARY TUMOUR
     Dosage: UNK, EVERY 28 DAYS
     Route: 065
     Dates: start: 20110720
  11. METFORMIN [Suspect]
     Active Substance: METFORMIN HYDROCHLORIDE
     Indication: DIABETES MELLITUS
     Route: 065
  12. SINVASTATINA [Suspect]
     Active Substance: SIMVASTATIN
     Indication: HYPERTENSION
     Dosage: UNK UNK, QHS
     Route: 065

REACTIONS (7)
  - Procedural haemorrhage [Unknown]
  - Drug ineffective [Unknown]
  - Malignant neoplasm progression [Unknown]
  - Hyponatraemia [Recovered/Resolved]
  - Epistaxis [Recovered/Resolved]
  - Tooth loss [Unknown]
  - Weight increased [Unknown]

NARRATIVE: CASE EVENT DATE: 20120106
